FAERS Safety Report 6029608-7 (Version None)
Quarter: 2009Q1

REPORT INFORMATION
  Report Type: 
  Country: None (occurrence: None)
  Receive Date: 20090107
  Receipt Date: 20080408
  Transmission Date: 20090719
  Serious: No
  Sender: FDA-Public Use
  Company Number: US-ABBOTT-08P-163-0446133-00

PATIENT
  Sex: Female
  Weight: 56.75 kg

DRUGS (7)
  1. VICODIN ES [Suspect]
     Indication: MIGRAINE
     Route: 048
     Dates: start: 20071001
  2. LORAZEPAM [Concomitant]
     Indication: TENSION HEADACHE
     Route: 048
  3. SALBUTAMOL SULFATE [Concomitant]
     Indication: ASTHMA
     Route: 055
  4. BECLOMETHASONE DIPROPIONATE [Concomitant]
     Indication: ASTHMA
     Route: 055
  5. FEXOFENADINE [Concomitant]
     Indication: HYPERSENSITIVITY
     Route: 048
  6. OMEPRAZOLE [Concomitant]
     Indication: DYSPEPSIA
     Route: 048
  7. OMEPRAZOLE [Concomitant]
     Indication: PROPHYLAXIS

REACTIONS (1)
  - DRUG INEFFECTIVE [None]
